FAERS Safety Report 8396345-3 (Version None)
Quarter: 2012Q2

REPORT INFORMATION
  Report Type: 
  Country: None (occurrence: None)
  Receive Date: 20120530
  Receipt Date: 20120515
  Transmission Date: 20120825
  Serious: Yes (Death)
  Sender: FDA-Public Use
  Company Number: US-ROCHE-1069647

PATIENT
  Sex: Female

DRUGS (4)
  1. KALETRA [Concomitant]
     Indication: ANTIVIRAL TREATMENT
     Route: 048
     Dates: start: 20110304
  2. COMBIVIR [Concomitant]
     Indication: ANTIVIRAL TREATMENT
     Route: 048
     Dates: start: 20111207
  3. ISENTRESS [Concomitant]
     Indication: ANTIVIRAL TREATMENT
     Route: 048
     Dates: start: 20110304, end: 20111207
  4. INVIRASE [Suspect]
     Indication: ANTIVIRAL TREATMENT
     Route: 048
     Dates: start: 20111207

REACTIONS (2)
  - DEATH NEONATAL [None]
  - MATERNAL EXPOSURE DURING PREGNANCY [None]
